FAERS Safety Report 7910189-5 (Version None)
Quarter: 2011Q4

REPORT INFORMATION
  Report Type: 
  Country: None (occurrence: None)
  Receive Date: 20111111
  Receipt Date: 20111102
  Transmission Date: 20120403
  Serious: Yes (Other)
  Sender: FDA-Public Use
  Company Number: US-ROCHE-1010946

PATIENT
  Sex: Female

DRUGS (3)
  1. VICTRELIS [Suspect]
     Indication: HEPATITIS C
     Route: 048
     Dates: start: 20110901
  2. RIBAVIRIN [Suspect]
     Indication: HEPATITIS C
     Dates: start: 20110723
  3. PEGASYS [Suspect]
     Indication: HEPATITIS C
     Dates: start: 20110723

REACTIONS (5)
  - NAUSEA [None]
  - DYSGEUSIA [None]
  - DRY MOUTH [None]
  - DIZZINESS [None]
  - LOSS OF CONSCIOUSNESS [None]
